FAERS Safety Report 11250971 (Version 2)
Quarter: 2015Q3

REPORT INFORMATION
  Report Type: Spontaneous
  Country: US (occurrence: US)
  Receive Date: 20150708
  Receipt Date: 20150831
  Transmission Date: 20151125
  Serious: No
  Sender: FDA-Public Use
  Company Number: US-ELI_LILLY_AND_COMPANY-US201106006661

PATIENT
  Sex: Female

DRUGS (11)
  1. CYMBALTA [Suspect]
     Active Substance: DULOXETINE HYDROCHLORIDE
     Dosage: 60 MG, QOD
  2. CYMBALTA [Suspect]
     Active Substance: DULOXETINE HYDROCHLORIDE
     Dosage: 30 MG, QOD
     Dates: end: 201106
  3. CYMBALTA [Suspect]
     Active Substance: DULOXETINE HYDROCHLORIDE
     Indication: DEPRESSION
     Dosage: 30 MG, QD
  4. PROZAC [Suspect]
     Active Substance: FLUOXETINE HYDROCHLORIDE
     Indication: DEPRESSION
     Dosage: 40 MG, QD
  5. CYMBALTA [Suspect]
     Active Substance: DULOXETINE HYDROCHLORIDE
     Dosage: 60 MG, QD
  6. ALPRAZOLAM. [Concomitant]
     Active Substance: ALPRAZOLAM
     Indication: ANXIETY
     Dosage: UNK, PRN
  7. CYMBALTA [Suspect]
     Active Substance: DULOXETINE HYDROCHLORIDE
     Dosage: UNK, UNKNOWN
  8. CYMBALTA [Suspect]
     Active Substance: DULOXETINE HYDROCHLORIDE
     Dosage: 60 MG, QOD
  9. ALEVE [Concomitant]
     Active Substance: NAPROXEN SODIUM
  10. WELLBUTRIN [Concomitant]
     Active Substance: BUPROPION HYDROCHLORIDE
     Indication: DISTURBANCE IN ATTENTION
  11. CYMBALTA [Suspect]
     Active Substance: DULOXETINE HYDROCHLORIDE
     Dosage: 30 MG, QOD

REACTIONS (31)
  - Feeling abnormal [Unknown]
  - Arthritis [Unknown]
  - Drug effect decreased [Recovered/Resolved]
  - Fatigue [Not Recovered/Not Resolved]
  - Sluggishness [Not Recovered/Not Resolved]
  - Aphasia [Unknown]
  - Somnolence [Not Recovered/Not Resolved]
  - Back injury [Recovered/Resolved]
  - Drug withdrawal syndrome [Unknown]
  - Lethargy [Not Recovered/Not Resolved]
  - Muscle twitching [Not Recovered/Not Resolved]
  - Weight decreased [Unknown]
  - Contusion [Unknown]
  - Mental impairment [Unknown]
  - Abnormal behaviour [Recovered/Resolved]
  - Weight increased [Not Recovered/Not Resolved]
  - Suicidal ideation [Unknown]
  - Discomfort [Not Recovered/Not Resolved]
  - Hypometabolism [Not Recovered/Not Resolved]
  - Muscle spasms [Unknown]
  - Migraine [Recovering/Resolving]
  - Nervousness [Unknown]
  - Decreased appetite [Unknown]
  - Influenza [Unknown]
  - Gait disturbance [Not Recovered/Not Resolved]
  - Malaise [Not Recovered/Not Resolved]
  - Headache [Unknown]
  - Vision blurred [Unknown]
  - Myalgia [Not Recovered/Not Resolved]
  - Crying [Unknown]
  - Nausea [Unknown]

NARRATIVE: CASE EVENT DATE: 2007
